FAERS Safety Report 8821689 (Version 2)
Quarter: 2012Q4

REPORT INFORMATION
  Report Type: 
  Country: US (occurrence: US)
  Receive Date: 20121002
  Receipt Date: 20121115
  Transmission Date: 20130627
  Serious: No
  Sender: FDA-Public Use
  Company Number: US-VERTEX PHARMACEUTICAL INC.-2012-020869

PATIENT
  Age: 59 Year
  Sex: Female
  Weight: 69 kg

DRUGS (3)
  1. INCIVEK [Suspect]
     Indication: HEPATITIS C
     Dosage: 750 mg, tid
     Route: 048
     Dates: start: 20120727
  2. RIBAVIRIN [Concomitant]
     Indication: HEPATITIS C
     Dosage: 400mg AM, 600mg PM
     Route: 048
     Dates: start: 20120727
  3. PEGASYS [Concomitant]
     Indication: HEPATITIS C
     Dosage: 180 ?g, UNK
     Route: 058
     Dates: start: 20120727

REACTIONS (3)
  - Headache [Not Recovered/Not Resolved]
  - Rash vesicular [Recovered/Resolved]
  - Nausea [Not Recovered/Not Resolved]
